FAERS Safety Report 24008336 (Version 2)
Quarter: 2025Q3

REPORT INFORMATION
  Report Type: Spontaneous
  Country: GB (occurrence: GB)
  Receive Date: 20240625
  Receipt Date: 20250707
  Transmission Date: 20251021
  Serious: Yes (Life-Threatening, Hospitalization, Other)
  Sender: AUROBINDO
  Company Number: GB-MLMSERVICE-20240430-PI040973-00034-1

PATIENT
  Age: 11 Month
  Sex: Male

DRUGS (1)
  1. AMIODARONE [Suspect]
     Active Substance: AMIODARONE
     Indication: Tachycardia
     Route: 065

REACTIONS (6)
  - Tachycardia [Recovered/Resolved]
  - Pulseless electrical activity [Recovered/Resolved]
  - Shock [Recovered/Resolved]
  - Cardiac arrest [Recovered/Resolved]
  - Incorrect drug administration rate [Recovered/Resolved]
  - Circulatory collapse [Unknown]
